FAERS Safety Report 8451327-8 (Version None)
Quarter: 2012Q2

REPORT INFORMATION
  Report Type: 
  Country: None (occurrence: None)
  Receive Date: 20120620
  Receipt Date: 20120613
  Transmission Date: 20120825
  Serious: Yes (Hospitalization)
  Sender: FDA-Public Use
  Company Number: US-B.I. PHARMACEUTICALS,INC./RIDGEFIELD-2011-BP-03593BP

PATIENT
  Sex: Female

DRUGS (1)
  1. PRADAXA [Suspect]
     Dates: start: 20101207, end: 20110309

REACTIONS (7)
  - APHAGIA [None]
  - GAIT DISTURBANCE [None]
  - ASTHENIA [None]
  - OEDEMA PERIPHERAL [None]
  - WEIGHT DECREASED [None]
  - INTESTINAL HAEMORRHAGE [None]
  - PAIN [None]
